FAERS Safety Report 13586580 (Version 1)
Quarter: 2017Q2

REPORT INFORMATION
  Report Type: Spontaneous
  Country: US (occurrence: US)
  Receive Date: 20170526
  Receipt Date: 20170526
  Transmission Date: 20170830
  Serious: Yes (Hospitalization, Other)
  Sender: FDA-Public Use
  Company Number: US-PURDUE-USA-2017-0139017

PATIENT
  Sex: Female

DRUGS (4)
  1. SENOKOT [Suspect]
     Active Substance: SENNOSIDES
     Indication: NERVE INJURY
  2. SENOKOTXTRA [Suspect]
     Active Substance: SENNOSIDES
     Indication: FUNCTIONAL GASTROINTESTINAL DISORDER
     Dosage: 2 TABLET, UNK
     Route: 048
  3. SENOKOT [Suspect]
     Active Substance: SENNOSIDES
     Indication: FUNCTIONAL GASTROINTESTINAL DISORDER
     Dosage: 1-2 TABLET, PRN
     Route: 048
  4. SENOKOTXTRA [Suspect]
     Active Substance: SENNOSIDES
     Indication: NERVE INJURY

REACTIONS (6)
  - Hypotension [Recovered/Resolved]
  - Diarrhoea [Unknown]
  - Constipation [Unknown]
  - Flatulence [Unknown]
  - Cardiac disorder [Unknown]
  - Chest pain [Unknown]
